FAERS Safety Report 5521133-2 (Version None)
Quarter: 2007Q4

REPORT INFORMATION
  Report Type: 
  Country: None (occurrence: None)
  Receive Date: 20071119
  Receipt Date: 20070925
  Transmission Date: 20080405
  Serious: Yes (Hospitalization)
  Sender: FDA-Public Use
  Company Number: US-ASTRAZENECA-2007UW07544

PATIENT
  Age: 494 Month
  Sex: Female
  Weight: 66.8 kg

DRUGS (36)
  1. SEROQUEL [Suspect]
     Indication: BIPOLAR I DISORDER
     Dosage: 300 MG TO 900 MG PER DAY
     Route: 048
     Dates: start: 20030901
  2. ALPRAZOLAM [Concomitant]
  3. FLUOXETINE [Concomitant]
  4. PREDNISONE TAB [Concomitant]
  5. FOSINOPRIL SODIUM [Concomitant]
  6. CRESTOR [Concomitant]
  7. WARFARIN SODIUM [Concomitant]
  8. LIPITOR [Concomitant]
  9. CEPHALEXIN [Concomitant]
  10. ED A-HIST [Concomitant]
  11. ZITHROMAX [Concomitant]
  12. ALBUTEROL [Concomitant]
     Indication: WHEEZING
     Dosage: 2 PUFFS Q4-6 PRN
  13. ALBUTEROL [Concomitant]
     Indication: DYSPNOEA
     Dosage: 2 PUFFS Q4-6 PRN
  14. LEVAQUIN [Concomitant]
  15. NICOTINE [Concomitant]
     Dosage: 21 MG 24 HOUR PATCH
  16. CLONAZEPAM [Concomitant]
  17. FUROSEMIDE [Concomitant]
  18. DIAZEPAM [Concomitant]
     Indication: DIZZINESS
     Dosage: FOR FIVE DAYS PRN
     Dates: start: 20050601
  19. DIAZEPAM [Concomitant]
     Indication: BALANCE DISORDER
     Dosage: FOR FIVE DAYS PRN
     Dates: start: 20050601
  20. AMOXICILLIN [Concomitant]
     Indication: INFECTION
  21. AVANDIA [Concomitant]
  22. CITALOPRAM HYDROBROMIDE [Concomitant]
  23. METFORMIN HCL [Concomitant]
  24. PRILOSEC [Concomitant]
  25. NEXIUM [Concomitant]
  26. OXYCODONE AND ACETAMINOPHEN [Concomitant]
     Indication: HEADACHE
     Dosage: 5/325 Q6 PRN
  27. LOVASTATIN [Concomitant]
  28. ACETAMINOPHEN AND HYDROCODONE BITARTRATE [Concomitant]
     Dosage: 5/500 Q8-12 PRN
  29. SPIRONOLACTONE [Concomitant]
  30. LISINOPRIL [Concomitant]
  31. PLAVIX [Concomitant]
  32. HEMATINIC PLUS VIT/MIN [Concomitant]
  33. DIGITEK [Concomitant]
  34. COMBIVENT [Concomitant]
     Dosage: 3 PUFFS EVERY 8 HOURS
  35. ASPIRIN [Concomitant]
  36. NITROFURANTOIN [Concomitant]

REACTIONS (3)
  - CARDIAC OPERATION [None]
  - MYOCARDIAL INFARCTION [None]
  - TYPE 2 DIABETES MELLITUS [None]
